FAERS Safety Report 10168362 (Version 1)
Quarter: 2014Q2

REPORT INFORMATION
  Report Type: Spontaneous
  Country: US (occurrence: US)
  Receive Date: 20140513
  Receipt Date: 20140513
  Transmission Date: 20141212
  Serious: Yes (Death, Other)
  Sender: FDA-Public Use
  Company Number: PHHY2014US055398

PATIENT
  Age: 12 Year
  Sex: Male

DRUGS (5)
  1. PACLITAXEL [Suspect]
     Indication: KAPOSI^S SARCOMA
     Dosage: 150 MG/M2, UNK
  2. DEXAMETHASONE [Concomitant]
     Route: 048
  3. ABACAVIR [Concomitant]
     Indication: ANTIRETROVIRAL THERAPY
  4. LAMIVUDINE [Concomitant]
     Indication: ANTIRETROVIRAL THERAPY
  5. EFAVIRENZ [Concomitant]
     Indication: ANTIRETROVIRAL THERAPY

REACTIONS (3)
  - Respiratory disorder [Fatal]
  - Kaposi^s sarcoma [Unknown]
  - Malignant neoplasm progression [Unknown]
